FAERS Safety Report 23232681 (Version 1)
Quarter: 2023Q4

REPORT INFORMATION
  Report Type: Report from Study
  Country: US (occurrence: US)
  Receive Date: 20231128
  Receipt Date: 20231128
  Transmission Date: 20240110
  Serious: Yes (Hospitalization, Other)
  Sender: FDA-Public Use
  Company Number: US-ABBVIE-5508754

PATIENT
  Age: 36 Year
  Sex: Female

DRUGS (1)
  1. VRAYLAR [Suspect]
     Active Substance: CARIPRAZINE
     Indication: Product used for unknown indication
     Dosage: 3MG
     Route: 048

REACTIONS (3)
  - Abdominal pain [Unknown]
  - Neoplasm [Unknown]
  - Constipation [Unknown]

NARRATIVE: CASE EVENT DATE: 20231001
